FAERS Safety Report 4926764-6 (Version None)
Quarter: 2006Q1

REPORT INFORMATION
  Report Type: 
  Country: None (occurrence: None)
  Receive Date: 20060228
  Receipt Date: 20050608
  Transmission Date: 20060701
  Serious: No
  Sender: FDA-Public Use
  Company Number: 2004058413

PATIENT
  Age: 43 Year
  Sex: Female

DRUGS (2)
  1. LAMICTAL [Suspect]
     Dosage: 25MG UNKNOWN
     Route: 048
     Dates: start: 20050101
  2. BENADRYL [Suspect]
     Indication: DRY SKIN
     Dosage: 15MG UNKNOWN
     Route: 065
     Dates: start: 20050410, end: 20050413

REACTIONS (4)
  - DIZZINESS [None]
  - INSOMNIA [None]
  - NAUSEA [None]
  - TREMOR [None]
